FAERS Safety Report 19544008 (Version 1)
Quarter: 2021Q3

REPORT INFORMATION
  Report Type: Spontaneous
  Country: US (occurrence: US)
  Receive Date: 20210713
  Receipt Date: 20210713
  Transmission Date: 20211014
  Serious: No
  Sender: FDA-Public Use
  Company Number: US-FERRINGPH-2021FE02854

PATIENT
  Age: 72 Year
  Sex: Male
  Weight: 78.91 kg

DRUGS (2)
  1. ZOMACTON [Suspect]
     Active Substance: SOMATROPIN
     Indication: ASTHENIA
  2. ZOMACTON [Suspect]
     Active Substance: SOMATROPIN
     Indication: MALAISE
     Dosage: UNSPECIFIED DOSE EVERY OTHER DAY
     Route: 065
     Dates: start: 2018

REACTIONS (9)
  - Weight increased [Unknown]
  - Product storage error [Unknown]
  - Product use in unapproved indication [Unknown]
  - Product preparation error [Unknown]
  - Product administration interrupted [Unknown]
  - Palpitations [Unknown]
  - Inappropriate schedule of product administration [Unknown]
  - Drug ineffective for unapproved indication [Unknown]
  - Off label use [Unknown]

NARRATIVE: CASE EVENT DATE: 2018
